FAERS Safety Report 5139630-0 (Version None)
Quarter: 2006Q4

REPORT INFORMATION
  Report Type: 
  Country: None (occurrence: None)
  Receive Date: 20061024
  Receipt Date: 20061011
  Transmission Date: 20070319
  Serious: Yes (Other)
  Sender: FDA-Public Use
  Company Number: 2006106570

PATIENT
  Age: 75 Year
  Sex: Male

DRUGS (16)
  1. SALAZOPYRIN (SULFASALAZINE) [Suspect]
     Indication: COLITIS ULCERATIVE
     Dosage: SEE IMAGE
     Dates: start: 20060113, end: 20060818
  2. SALAZOPYRIN (SULFASALAZINE) [Suspect]
     Indication: COLITIS ULCERATIVE
     Dosage: SEE IMAGE
     Dates: start: 20060113, end: 20060818
  3. OMEPRAZOLE [Suspect]
     Indication: REFLUX OESOPHAGITIS
     Dosage: 20 MG (1 IN 1 D), ORAL
     Route: 048
     Dates: start: 20060125, end: 20060818
  4. SEREVENT [Concomitant]
  5. DEPAS (ETIZOLAM) [Concomitant]
  6. ROXATIDINE ACETATE HCL [Concomitant]
  7. SPIRIVA [Concomitant]
  8. RINDERON-VG (BETAMETHASONE VALERATE, GENTAMICIN SULFATE) [Concomitant]
  9. ADALAT [Concomitant]
  10. DASEN (SERRAPEPTASE) [Concomitant]
  11. SELBEX (TEPRENONE) [Concomitant]
  12. BISOLVON (BROMHEXINE HYDROCHLORIDE) [Concomitant]
  13. UNIPHYL [Concomitant]
  14. LAC B (LACTOBACILLUS BIFIDUS, LYOPHILIZED) [Concomitant]
  15. BETAMETHASONE [Concomitant]
  16. PROCTOSEDYL ^HOECHST^ (CINCHOCAINE HYDROCHLORIDE, HYDROCORTISONE) [Concomitant]

REACTIONS (2)
  - ANAEMIA [None]
  - PLATELET COUNT DECREASED [None]
